FAERS Safety Report 21078413 (Version 3)
Quarter: 2022Q3

REPORT INFORMATION
  Report Type: Spontaneous
  Country: US (occurrence: US)
  Receive Date: 20220713
  Receipt Date: 20220824
  Transmission Date: 20221026
  Serious: Yes (Hospitalization, Other)
  Sender: FDA-Public Use
  Company Number: US-GILEAD-2022-0588487

PATIENT
  Age: 75 Year
  Sex: Male
  Weight: 69.4 kg

DRUGS (36)
  1. YESCARTA [Suspect]
     Active Substance: AXICABTAGENE CILOLEUCEL
     Indication: Diffuse large B-cell lymphoma
     Route: 042
     Dates: start: 20220608, end: 20220608
  2. LEVETIRACETAM [Concomitant]
     Active Substance: LEVETIRACETAM
     Indication: Diffuse large B-cell lymphoma
     Dosage: UNK
     Dates: start: 20220608, end: 20220619
  3. LEVETIRACETAM [Concomitant]
     Active Substance: LEVETIRACETAM
     Dosage: UNK
     Dates: start: 20220619
  4. TOCILIZUMAB [Concomitant]
     Active Substance: TOCILIZUMAB
     Indication: Cytokine release syndrome
     Dosage: 630 MG
     Route: 042
     Dates: start: 20220613, end: 20220613
  5. TOCILIZUMAB [Concomitant]
     Active Substance: TOCILIZUMAB
     Dosage: UNK
     Dates: start: 20220616, end: 20220616
  6. TOCILIZUMAB [Concomitant]
     Active Substance: TOCILIZUMAB
     Dosage: UNK
     Dates: start: 20220615, end: 20220615
  7. DEXAMETHASONE [Concomitant]
     Active Substance: DEXAMETHASONE
     Indication: Cytokine release syndrome
     Dosage: UNK
     Route: 042
     Dates: start: 20220616, end: 20220620
  8. ACYCLOVIR ABBOTT VIAL [Concomitant]
  9. LEVAQUIN [Concomitant]
     Active Substance: LEVOFLOXACIN
  10. MICAFUNGIN [Concomitant]
     Active Substance: MICAFUNGIN
  11. OMEPRAZOLE [Concomitant]
     Active Substance: OMEPRAZOLE
  12. ALLOPURINOL [Concomitant]
     Active Substance: ALLOPURINOL
  13. URSODIOL [Concomitant]
     Active Substance: URSODIOL
  14. LORATADINE [Concomitant]
     Active Substance: LORATADINE
  15. SENNOSIDES A AND B [Concomitant]
     Active Substance: SENNOSIDES A AND B
  16. TIMOLOL [Concomitant]
     Active Substance: TIMOLOL
  17. MINERALS\VITAMINS [Concomitant]
     Active Substance: MINERALS\VITAMINS
  18. GABAPENTIN [Concomitant]
     Active Substance: GABAPENTIN
  19. OXYCODONE [Concomitant]
     Active Substance: OXYCODONE
  20. MELATONIN [Concomitant]
     Active Substance: MELATONIN
  21. TRAZODONE [Concomitant]
     Active Substance: TRAZODONE HYDROCHLORIDE
  22. ALTEPLASE [Concomitant]
     Active Substance: ALTEPLASE
  23. DEXTROSE [Concomitant]
     Active Substance: DEXTROSE
  24. DIPHENHYDRAMINE [Concomitant]
     Active Substance: DIPHENHYDRAMINE
  25. ENOXAPARIN [Concomitant]
     Active Substance: ENOXAPARIN
  26. HEPARIN [Concomitant]
     Active Substance: HEPARIN SODIUM
  27. LORAZEPAM [Concomitant]
     Active Substance: LORAZEPAM
  28. METHYLPREDNISOLONE SODIUM SUCCINATE [Concomitant]
     Active Substance: METHYLPREDNISOLONE SODIUM SUCCINATE
  29. PANTOPRAZOLE [Concomitant]
     Active Substance: PANTOPRAZOLE
  30. PIPERACILLIN AND TAZOBACTAM [Concomitant]
     Active Substance: PIPERACILLIN SODIUM\TAZOBACTAM SODIUM
  31. POLYETHYLENE GLYCOL 3350 [Concomitant]
     Active Substance: POLYETHYLENE GLYCOL 3350
  32. POTASSIUM CHLORIDE [Concomitant]
     Active Substance: POTASSIUM CHLORIDE
  33. PROCHLORPERAZINE [Concomitant]
     Active Substance: PROCHLORPERAZINE
  34. SODIUM CHLORIDE [Concomitant]
     Active Substance: SODIUM CHLORIDE
  35. VANCOMYCIN [Concomitant]
     Active Substance: VANCOMYCIN
  36. CEFEPIME [Concomitant]
     Active Substance: CEFEPIME HYDROCHLORIDE

REACTIONS (5)
  - Dysphagia [Recovered/Resolved]
  - Cytokine release syndrome [Recovered/Resolved]
  - Confusional state [Recovered/Resolved]
  - Encephalopathy [Recovered/Resolved]
  - Neurotoxicity [Recovered/Resolved]

NARRATIVE: CASE EVENT DATE: 20220613
